FAERS Safety Report 5154187-6 (Version None)
Quarter: 2006Q4

REPORT INFORMATION
  Report Type: 
  Country: None (occurrence: None)
  Receive Date: 20061120
  Receipt Date: 20061109
  Transmission Date: 20070319
  Serious: Yes (Death)
  Sender: FDA-Public Use
  Company Number: IN-BRISTOL-MYERS SQUIBB COMPANY-13575147

PATIENT
  Age: 44 Year
  Sex: Male

DRUGS (3)
  1. BARACLUDE [Suspect]
     Indication: HEPATITIS B
     Route: 048
     Dates: start: 20060816, end: 20060829
  2. LAMIVUDINE [Concomitant]
  3. ANTIBIOTICS [Concomitant]

REACTIONS (2)
  - PERITONITIS BACTERIAL [None]
  - SEPTIC SHOCK [None]
